FAERS Safety Report 19273855 (Version 3)
Quarter: 2021Q3

REPORT INFORMATION
  Report Type: Report from Study
  Country: CN (occurrence: CN)
  Receive Date: 20210519
  Receipt Date: 20210716
  Transmission Date: 20211014
  Serious: Yes (Death, Hospitalization)
  Sender: FDA-Public Use
  Company Number: NVSC2021CN105087

PATIENT
  Age: 64 Year
  Sex: Female
  Weight: 45 kg

DRUGS (3)
  1. ZYKADIA [Suspect]
     Active Substance: CERITINIB
     Indication: NON-SMALL CELL LUNG CANCER
     Dosage: 450 MG, QD
     Route: 048
     Dates: start: 20190929, end: 20210429
  2. INSULIN [Concomitant]
     Active Substance: INSULIN NOS
     Indication: BLOOD GLUCOSE FLUCTUATION
  3. INSULIN [Concomitant]
     Active Substance: INSULIN NOS
     Indication: DIABETES MELLITUS
     Dosage: HIGHER THAN 14, THE DOSE WAS 18; NO MORE THAN 14, THE DOSE WAS 12
     Route: 065

REACTIONS (12)
  - Heart rate increased [Fatal]
  - Ill-defined disorder [Not Recovered/Not Resolved]
  - Drug resistance [Unknown]
  - Feeding disorder [Recovering/Resolving]
  - Coma [Fatal]
  - White blood cell count decreased [Not Recovered/Not Resolved]
  - Blood glucose increased [Not Recovered/Not Resolved]
  - Dysphagia [Recovering/Resolving]
  - Metastases to central nervous system [Not Recovered/Not Resolved]
  - Gait inability [Not Recovered/Not Resolved]
  - Blood potassium decreased [Not Recovered/Not Resolved]
  - Upper respiratory tract infection [Not Recovered/Not Resolved]

NARRATIVE: CASE EVENT DATE: 20210429
